FAERS Safety Report 4750112-8 (Version None)
Quarter: 2005Q3

REPORT INFORMATION
  Report Type: 
  Country: None (occurrence: None)
  Receive Date: 20050819
  Receipt Date: 20050819
  Transmission Date: 20060218
  Serious: Yes (Other)
  Sender: FDA-Public Use
  Company Number: None

PATIENT
  Sex: Male
  Weight: 93.9 kg

DRUGS (2)
  1. CYCLOPHOSPHAMIDE [Suspect]
     Indication: BREAST CANCER
     Dosage: SEE IMAGE
     Dates: start: 20050722
  2. DOXORUBICIN [Suspect]
     Dosage: SEE IMAGE
     Dates: start: 20050722

REACTIONS (3)
  - DRUG TOXICITY [None]
  - GRANULOCYTES ABNORMAL [None]
  - NEUTROPHIL COUNT DECREASED [None]
